FAERS Safety Report 6956158-3 (Version None)
Quarter: 2010Q3

REPORT INFORMATION
  Report Type: 
  Country: None (occurrence: None)
  Receive Date: 20100830
  Receipt Date: 20100816
  Transmission Date: 20110219
  Serious: Yes (Hospitalization)
  Sender: FDA-Public Use
  Company Number: PHHY2010BR54947

PATIENT
  Sex: Female

DRUGS (1)
  1. FORASEQ [Suspect]
     Dosage: 12/400 MCG 60/60

REACTIONS (3)
  - ASTHENIA [None]
  - PAIN [None]
  - TREATMENT NONCOMPLIANCE [None]
